FAERS Safety Report 18043112 (Version 3)
Quarter: 2020Q3

REPORT INFORMATION
  Report Type: Report from Study
  Country: US (occurrence: US)
  Receive Date: 20200720
  Receipt Date: 20200924
  Transmission Date: 20201103
  Serious: Yes (Hospitalization)
  Sender: FDA-Public Use
  Company Number: US-EISAI MEDICAL RESEARCH-EC-2020-077398

PATIENT
  Age: 71 Year
  Sex: Male
  Weight: 84 kg

DRUGS (5)
  1. LENVIMA [Suspect]
     Active Substance: LENVATINIB
     Dosage: ALTERNATING 4 MG AND 8 MG
     Route: 048
     Dates: start: 202007, end: 202008
  2. LENVIMA [Suspect]
     Active Substance: LENVATINIB
     Route: 048
     Dates: start: 20200909, end: 202009
  3. LENVIMA [Suspect]
     Active Substance: LENVATINIB
     Indication: HEPATOCELLULAR CARCINOMA
     Route: 048
     Dates: start: 202003, end: 202007
  4. METOPROLOL SUCCINATE. [Concomitant]
     Active Substance: METOPROLOL SUCCINATE
  5. LENVIMA [Suspect]
     Active Substance: LENVATINIB
     Route: 048
     Dates: start: 20200708, end: 202007

REACTIONS (10)
  - Drug ineffective [Unknown]
  - Loss of consciousness [Unknown]
  - Chromaturia [Unknown]
  - Vertigo [Unknown]
  - Diarrhoea [Recovered/Resolved]
  - Dizziness [Unknown]
  - Heart rate decreased [Unknown]
  - Solar lentigo [Unknown]
  - Dysarthria [Unknown]
  - Fatigue [Unknown]

NARRATIVE: CASE EVENT DATE: 2020
